FAERS Safety Report 5934617-X (Version None)
Quarter: 2008Q4

REPORT INFORMATION
  Report Type: 
  Country: None (occurrence: None)
  Receive Date: 20081010
  Receipt Date: 20080627
  Transmission Date: 20090506
  Serious: No
  Sender: FDA-Public Use
  Company Number: 2008BM000132

PATIENT
  Age: 26 Year
  Sex: Female

DRUGS (2)
  1. KUVAN [Suspect]
     Indication: PHENYLKETONURIA
     Dosage: 20 MG;QD;PO
     Route: 048
     Dates: start: 20080523, end: 20080604
  2. ADDERALL 10 [Concomitant]

REACTIONS (1)
  - ANXIETY [None]
